FAERS Safety Report 11432942 (Version 4)
Quarter: 2018Q1

REPORT INFORMATION
  Report Type: Spontaneous
  Country: US (occurrence: US)
  Receive Date: 20150828
  Receipt Date: 20180327
  Transmission Date: 20180508
  Serious: Yes (Other)
  Sender: FDA-Public Use
  Company Number: US-BIOMARINAP-US-2015-107211

PATIENT
  Sex: Female

DRUGS (2)
  1. ALDURAZYME [Suspect]
     Active Substance: LARONIDASE
     Indication: MUCOPOLYSACCHARIDOSIS I
     Dosage: 40.6 MG, QW
     Route: 041
     Dates: start: 20030611
  2. ALDURAZYME [Suspect]
     Active Substance: LARONIDASE
     Dosage: 40 MG, QW
     Route: 041
     Dates: start: 20130928

REACTIONS (3)
  - Heart valve replacement [Not Recovered/Not Resolved]
  - Pulmonary valve disease [Not Recovered/Not Resolved]
  - Weight increased [Unknown]
